FAERS Safety Report 7645605-X (Version None)
Quarter: 2011Q3

REPORT INFORMATION
  Report Type: 
  Country: None (occurrence: None)
  Receive Date: 20110729
  Receipt Date: 20110726
  Transmission Date: 20111222
  Serious: Yes (Other)
  Sender: FDA-Public Use
  Company Number: US-PFIZER INC-2011132071

PATIENT
  Sex: Male

DRUGS (2)
  1. NEURONTIN [Suspect]
     Dosage: UNK
  2. TOPAMAX [Suspect]
     Dosage: 16 TOPIRAMATE 25MG CAPSULES A DAY

REACTIONS (1)
  - CONVULSION [None]
